FAERS Safety Report 9542855 (Version 1)
Quarter: 2013Q3

REPORT INFORMATION
  Report Type: Spontaneous
  Country: US (occurrence: US)
  Receive Date: 20130923
  Receipt Date: 20130923
  Transmission Date: 20140515
  Serious: No
  Sender: FDA-Public Use
  Company Number: US-PFIZER INC-2013270563

PATIENT
  Age: 56 Year
  Sex: Female
  Weight: 60.8 kg

DRUGS (3)
  1. LEVOXYL [Suspect]
     Indication: HYPOTHYROIDISM
     Dosage: 0.088 MG, 1X/DAY
     Dates: start: 1998, end: 201306
  2. LEVOXYL [Suspect]
     Dosage: 0.088 MG, 1X/DAY
     Dates: start: 201308
  3. CLORAZEPATE [Concomitant]
     Indication: MENINGITIS VIRAL
     Dosage: UNK

REACTIONS (4)
  - Migraine with aura [Not Recovered/Not Resolved]
  - Photopsia [Unknown]
  - Spinal osteoarthritis [Unknown]
  - Body height decreased [Unknown]
